FAERS Safety Report 18214186 (Version 3)
Quarter: 2021Q1

REPORT INFORMATION
  Report Type: Spontaneous
  Country: JP (occurrence: JP)
  Receive Date: 20200831
  Receipt Date: 20210122
  Transmission Date: 20210419
  Serious: Yes (Hospitalization)
  Sender: FDA-Public Use
  Company Number: JP-ALLERGAN-2032088US

PATIENT
  Sex: Male

DRUGS (4)
  1. UBRETID [Concomitant]
     Active Substance: DISTIGMINE BROMIDE
     Route: 048
  2. VIMPAT [Concomitant]
     Active Substance: LACOSAMIDE
     Route: 048
  3. AVOLVE [Concomitant]
     Active Substance: DUTASTERIDE
     Route: 048
  4. SILODOSIN ? BP [Suspect]
     Active Substance: SILODOSIN
     Indication: BENIGN PROSTATIC HYPERPLASIA
     Dosage: UNK
     Route: 048
     Dates: start: 2018

REACTIONS (3)
  - Pneumonia [Unknown]
  - Nipple pain [Unknown]
  - Medication error [Unknown]
